FAERS Safety Report 15251365 (Version 2)
Quarter: 2018Q3

REPORT INFORMATION
  Report Type: Spontaneous
  Country: US (occurrence: US)
  Receive Date: 20180807
  Receipt Date: 20180808
  Transmission Date: 20181010
  Serious: No
  Sender: FDA-Public Use
  Company Number: US-SA-2018SA209069

PATIENT
  Age: 49 Year
  Sex: Male

DRUGS (1)
  1. SOLIQUA 100/33 [Suspect]
     Active Substance: INSULIN GLARGINE\LIXISENATIDE
     Indication: TYPE 2 DIABETES MELLITUS
     Dosage: 20?22 UNITS
     Route: 065

REACTIONS (4)
  - Drug dose omission [Unknown]
  - Vision blurred [Unknown]
  - Blood glucose increased [Unknown]
  - Tremor [Unknown]
